FAERS Safety Report 5207744-2 (Version None)
Quarter: 2006Q4

REPORT INFORMATION
  Report Type: 
  Country: None (occurrence: None)
  Receive Date: 20061030
  Receipt Date: 20060926
  Transmission Date: 20070319
  Serious: Yes (Death)
  Sender: FDA-Public Use
  Company Number: 2006CT000754

PATIENT
  Age: 78 Year
  Sex: Female
  Weight: 68.4932 kg

DRUGS (11)
  1. VENTAVIS [Suspect]
     Indication: PULMONARY HYPERTENSION
     Dosage: 5 UG; 6 TO 9X/DAY; INH
     Route: 055
     Dates: start: 20060404, end: 20060523
  2. ASPIRIN [Concomitant]
  3. CALCIUM [Concomitant]
  4. LASIX [Concomitant]
  5. SYNTHROID [Concomitant]
  6. PANTOPRAZOLE SODIUM [Concomitant]
  7. PENTOXIFYLLINE [Concomitant]
  8. PREDNISONE [Concomitant]
  9. ALBUTEROL [Concomitant]
  10. SILDENAFIL CITRATE [Concomitant]
  11. .. [Concomitant]

REACTIONS (1)
  - PULMONARY HYPERTENSION [None]
